FAERS Safety Report 22521815 (Version 1)
Quarter: 2023Q2

REPORT INFORMATION
  Report Type: Spontaneous
  Country: US (occurrence: US)
  Receive Date: 20230605
  Receipt Date: 20230605
  Transmission Date: 20230722
  Serious: Yes (Other)
  Sender: FDA-Public Use
  Company Number: US-002147023-NVSC2023US122669

PATIENT
  Sex: Female

DRUGS (1)
  1. AZITHROMYCIN [Suspect]
     Active Substance: AZITHROMYCIN
     Indication: Mycobacterium avium complex infection
     Dosage: UNK
     Route: 065

REACTIONS (8)
  - Atypical mycobacterial infection [Unknown]
  - Aspergillus infection [Unknown]
  - Haemoptysis [Unknown]
  - Productive cough [Unknown]
  - Throat clearing [Unknown]
  - Staphylococcal infection [Unknown]
  - Cough [Unknown]
  - Pulmonary mass [Unknown]

NARRATIVE: CASE EVENT DATE: 20210801
